FAERS Safety Report 5971547-1 (Version None)
Quarter: 2008Q4

REPORT INFORMATION
  Report Type: 
  Country: None (occurrence: None)
  Receive Date: 20081201
  Receipt Date: 20081001
  Transmission Date: 20090506
  Serious: No
  Sender: FDA-Public Use
  Company Number: US-AMGEN-KDL301805

PATIENT
  Sex: Male
  Weight: 138.5 kg

DRUGS (9)
  1. ENBREL [Suspect]
     Indication: RHEUMATOID ARTHRITIS
     Route: 058
     Dates: start: 20070101
  2. LYRICA [Concomitant]
     Route: 048
  3. TOPAMAX [Concomitant]
     Route: 048
  4. OMEPRAZOLE [Concomitant]
     Route: 048
  5. HUMALOG [Concomitant]
     Route: 058
  6. LANTUS [Concomitant]
     Route: 058
  7. PREDNISONE TAB [Concomitant]
     Route: 048
  8. OXYCODONE HCL [Concomitant]
     Route: 048
  9. MULTI-VITAMINS [Concomitant]
     Route: 048

REACTIONS (8)
  - ASTHENIA [None]
  - BLOOD GLUCOSE FLUCTUATION [None]
  - DYSPNOEA [None]
  - FATIGUE [None]
  - JOINT STIFFNESS [None]
  - NAUSEA [None]
  - VOMITING [None]
  - WEIGHT INCREASED [None]
